FAERS Safety Report 9152717 (Version 2)
Quarter: 2013Q1

REPORT INFORMATION
  Report Type: Report from Study
  Country: DE (occurrence: DE)
  Receive Date: 20130308
  Receipt Date: 20130319
  Transmission Date: 20140127
  Serious: Yes (Hospitalization, Other)
  Sender: FDA-Public Use
  Company Number: DE-009507513-1302DEU002703

PATIENT
  Age: 81 Year
  Sex: Male
  Weight: 80 kg

DRUGS (4)
  1. PLACEBO [Suspect]
     Indication: OSTEOPOROSIS
     Dosage: UNK
     Route: 048
  2. ASPIRIN [Concomitant]
     Dosage: 100 MG, QD
     Route: 048
  3. EZETROL 10 MG TABLETTEN [Concomitant]
     Dosage: 10 MG, QD
     Route: 048
  4. TERAZOSIN HYDROCHLORIDE [Concomitant]
     Dosage: 5 MG, QD
     Route: 048

REACTIONS (5)
  - Carotid artery occlusion [Recovering/Resolving]
  - Metaplasia [Recovered/Resolved]
  - Gastritis [Recovered/Resolved]
  - Impaired healing [Recovered/Resolved]
  - Tooth extraction [Recovering/Resolving]
